FAERS Safety Report 10956886 (Version 3)
Quarter: 2015Q2

REPORT INFORMATION
  Report Type: Spontaneous
  Country: US (occurrence: US)
  Receive Date: 20150326
  Receipt Date: 20150619
  Transmission Date: 20150821
  Serious: Yes (Death, Hospitalization)
  Sender: FDA-Public Use
  Company Number: US-PFIZER INC-2015102845

PATIENT
  Age: 83 Year
  Sex: Male
  Weight: 99 kg

DRUGS (2)
  1. VFEND [Suspect]
     Active Substance: VORICONAZOLE
     Indication: NEUTROPENIA
     Dosage: 150 MG, 2X/DAY
     Route: 048
     Dates: start: 201503
  2. VFEND [Suspect]
     Active Substance: VORICONAZOLE
     Indication: PNEUMONIA FUNGAL
     Dosage: 200 MG, 2X/DAY
     Route: 048
     Dates: start: 20150212, end: 201503

REACTIONS (3)
  - Neutropenia [Fatal]
  - Leukaemia [Fatal]
  - Disease progression [Fatal]
